FAERS Safety Report 8135128-6 (Version None)
Quarter: 2012Q1

REPORT INFORMATION
  Report Type: 
  Country: None (occurrence: None)
  Receive Date: 20120214
  Receipt Date: 20120206
  Transmission Date: 20120608
  Serious: Yes (Hospitalization)
  Sender: FDA-Public Use
  Company Number: US-BAYER-2011-035830

PATIENT
  Age: 35 Year
  Sex: Female
  Weight: 66 kg

DRUGS (4)
  1. PHENTERMINE [Concomitant]
     Dosage: 30 MG, UNK
     Dates: start: 20090319
  2. METHYLPREDNISOLONE [Concomitant]
     Dosage: 4 MG, UNK
     Dates: start: 20090415
  3. LORAZEPAM [Concomitant]
     Dosage: 0.5 MG, UNK
     Dates: start: 20090415
  4. YAZ [Suspect]
     Indication: CONTRACEPTION
     Dosage: UNK
     Dates: start: 20090101, end: 20090101

REACTIONS (6)
  - PAIN [None]
  - TRANSIENT ISCHAEMIC ATTACK [None]
  - ANXIETY [None]
  - INJURY [None]
  - EMOTIONAL DISTRESS [None]
  - ANHEDONIA [None]
